FAERS Safety Report 23673133 (Version 1)
Quarter: 2024Q1

REPORT INFORMATION
  Report Type: Spontaneous
  Country: BG (occurrence: BG)
  Receive Date: 20240326
  Receipt Date: 20240326
  Transmission Date: 20240410
  Serious: Yes (Other)
  Sender: FDA-Public Use
  Company Number: BG-MYLANLABS-2024M1026672

PATIENT
  Sex: Male

DRUGS (8)
  1. VALSARTAN [Suspect]
     Active Substance: VALSARTAN
     Indication: Hypertension
     Dosage: 160 MILLIGRAM, QD, ONCE IN THE MORNING
     Route: 065
     Dates: start: 2015, end: 2018
  2. AMLODIPINE BESYLATE\OLMESARTAN MEDOXOMIL [Suspect]
     Active Substance: AMLODIPINE BESYLATE\OLMESARTAN MEDOXOMIL
     Indication: Hypertension
     Dosage: UNK UNK, QD, ONCE IN THE EVENING
     Route: 065
     Dates: start: 202207, end: 202302
  3. AMLODIPINE BESYLATE\OLMESARTAN MEDOXOMIL [Suspect]
     Active Substance: AMLODIPINE BESYLATE\OLMESARTAN MEDOXOMIL
     Dosage: UNK UNK, QD, ONCE IN THE MORNING
     Route: 065
     Dates: start: 202202
  4. HYDROCHLOROTHIAZIDE\OLMESARTAN MEDOXOMIL [Suspect]
     Active Substance: HYDROCHLOROTHIAZIDE\OLMESARTAN MEDOXOMIL
     Indication: Hypertension
     Dosage: UNK
     Route: 065
     Dates: start: 202207, end: 202302
  5. HYDROCHLOROTHIAZIDE\VALSARTAN [Suspect]
     Active Substance: HYDROCHLOROTHIAZIDE\VALSARTAN
     Indication: Hypertension
     Dosage: UNK UNK, QD, ONCE IN THE MORNING
     Route: 065
     Dates: start: 2018, end: 202208
  6. MOXONIDINE [Concomitant]
     Active Substance: MOXONIDINE
     Indication: Hypertension
     Dosage: 0.2 MILLIGRAM, QD, IN THE EVENING WHEN NEEDED
     Route: 065
     Dates: start: 2015
  7. AMIKACIN [Concomitant]
     Active Substance: AMIKACIN
     Indication: Antibiotic therapy
     Dosage: 1000 MILLIGRAM, BID
     Route: 030
     Dates: start: 2023
  8. AMIKACIN [Concomitant]
     Active Substance: AMIKACIN
     Indication: Wound infection
     Dosage: 500 MILLIGRAM, BID
     Route: 030

REACTIONS (3)
  - Skin papilloma [Unknown]
  - Neoplasm malignant [Unknown]
  - Basal cell carcinoma [Unknown]

NARRATIVE: CASE EVENT DATE: 20150101
